FAERS Safety Report 23731668 (Version 6)
Quarter: 2024Q3

REPORT INFORMATION
  Report Type: Report from Study
  Country: AT (occurrence: AT)
  Receive Date: 20240411
  Receipt Date: 20240916
  Transmission Date: 20241017
  Serious: Yes (Death, Hospitalization, Other)
  Sender: PERRIGO
  Company Number: AT-ABBVIE-5293088

PATIENT
  Age: 67 Year
  Sex: Male
  Weight: 75 kg

DRUGS (105)
  1. NICOTINE [Suspect]
     Active Substance: NICOTINE
     Indication: Product used for unknown indication
     Dosage: UNK
     Route: 065
  2. VENETOCLAX [Suspect]
     Active Substance: VENETOCLAX
     Indication: Acute myeloid leukaemia
     Dosage: 200 MG
     Route: 048
     Dates: start: 20230717, end: 20230813
  3. VENETOCLAX [Suspect]
     Active Substance: VENETOCLAX
     Dosage: DOSE: 0 MG
     Route: 048
     Dates: start: 20240325, end: 20240407
  4. VENETOCLAX [Suspect]
     Active Substance: VENETOCLAX
     Dosage: DOSE: 0 MG
     Route: 048
     Dates: start: 20230831, end: 20230910
  5. VENETOCLAX [Suspect]
     Active Substance: VENETOCLAX
     Dosage: RAMP-UP PHASE
     Route: 048
     Dates: start: 20230511, end: 20230524
  6. VENETOCLAX [Suspect]
     Active Substance: VENETOCLAX
     Dosage: 200 MG
     Route: 048
     Dates: start: 20240408, end: 20240421
  7. VENETOCLAX [Suspect]
     Active Substance: VENETOCLAX
     Dosage: FREQUENCY TEXT: RAMP-UP PHASE
     Route: 048
     Dates: start: 20230508, end: 20230508
  8. VENETOCLAX [Suspect]
     Active Substance: VENETOCLAX
     Dosage: DOSE: 0 MG
     Route: 048
     Dates: start: 20230925, end: 20231008
  9. VENETOCLAX [Suspect]
     Active Substance: VENETOCLAX
     Dosage: DOSE: 0 MG
     Route: 048
     Dates: start: 20231024, end: 20231105
  10. VENETOCLAX [Suspect]
     Active Substance: VENETOCLAX
     Dosage: 200 MG
     Route: 048
     Dates: start: 20240212, end: 20240225
  11. VENETOCLAX [Suspect]
     Active Substance: VENETOCLAX
     Dosage: DOSE: 0 MG
     Route: 048
     Dates: start: 20231121, end: 20231217
  12. VENETOCLAX [Suspect]
     Active Substance: VENETOCLAX
     Dosage: DOSE: 0 MG
     Route: 048
     Dates: start: 20230525, end: 20230618
  13. VENETOCLAX [Suspect]
     Active Substance: VENETOCLAX
     Dosage: FREQUENCY TEXT: RAMP-UP PHASE
     Route: 048
     Dates: start: 20230509, end: 20230509
  14. VENETOCLAX [Suspect]
     Active Substance: VENETOCLAX
     Dosage: 200 MG
     Route: 048
     Dates: start: 20240506
  15. VENETOCLAX [Suspect]
     Active Substance: VENETOCLAX
     Dosage: 400 MG
     Route: 048
     Dates: start: 20230510, end: 20230510
  16. VENETOCLAX [Suspect]
     Active Substance: VENETOCLAX
     Dosage: DOSE: 0 MG, FREQUENCY TEXT: NON HEMATOLOGIC AE/SAE
     Route: 048
     Dates: start: 20240422, end: 20240505
  17. VENETOCLAX [Suspect]
     Active Substance: VENETOCLAX
     Dosage: 200 MG
     Route: 048
     Dates: start: 20231009, end: 20231023
  18. VENETOCLAX [Suspect]
     Active Substance: VENETOCLAX
     Dosage: LAST ADMIN DAT: MAR 2024
     Route: 048
     Dates: start: 20240311
  19. VENETOCLAX [Suspect]
     Active Substance: VENETOCLAX
     Dosage: STANDARD DOSE
     Route: 048
     Dates: start: 20231218, end: 20240101
  20. VENETOCLAX [Suspect]
     Active Substance: VENETOCLAX
     Dosage: 200 MG
     Route: 048
     Dates: start: 20230911, end: 20230924
  21. VENETOCLAX [Suspect]
     Active Substance: VENETOCLAX
     Dosage: DOSE: 0 MG
     Route: 048
     Dates: start: 20240115, end: 20240211
  22. VENETOCLAX [Suspect]
     Active Substance: VENETOCLAX
     Dosage: RAMP-UP PHASE
     Route: 048
     Dates: start: 20230619, end: 20230716
  23. VENETOCLAX [Suspect]
     Active Substance: VENETOCLAX
     Dosage: STANDARD DOSE
     Route: 048
     Dates: start: 20231106, end: 20231120
  24. VENETOCLAX [Suspect]
     Active Substance: VENETOCLAX
     Dosage: 200 MG
     Route: 048
     Dates: start: 20230816, end: 20230830
  25. VENETOCLAX [Suspect]
     Active Substance: VENETOCLAX
     Dosage: DOSE: 0 MG
     Route: 048
     Dates: start: 20230814, end: 20230815
  26. VENETOCLAX [Suspect]
     Active Substance: VENETOCLAX
     Dosage: UNK
     Route: 065
  27. VENETOCLAX [Suspect]
     Active Substance: VENETOCLAX
     Dosage: DOSE: 0 MG
     Route: 048
     Dates: start: 20240226, end: 20240310
  28. VENETOCLAX [Suspect]
     Active Substance: VENETOCLAX
     Dosage: DOSE: 0 MG
     Route: 048
     Dates: start: 20240102, end: 20240114
  29. VENETOCLAX [Suspect]
     Active Substance: VENETOCLAX
     Dosage: DOSE: 0 MG, FREQUENCY TEXT: NON HEMATOLOGIC AE/SAE
     Dates: start: 20240521, end: 20240602
  30. VENETOCLAX [Suspect]
     Active Substance: VENETOCLAX
     Dosage: FREQUENCY TEXT: NON HEMATOLOGIC AE/SAE
     Dates: start: 20240603, end: 20240616
  31. VENETOCLAX [Suspect]
     Active Substance: VENETOCLAX
     Dosage: DOSE: 0 MG, FREQUENCY TEXT: NON HEMATOLOGIC AE/SAE
     Dates: start: 20240617, end: 20240630
  32. PANTOPRAZOLE SODIUM [Concomitant]
     Active Substance: PANTOPRAZOLE SODIUM
     Indication: Product used for unknown indication
     Dosage: FREQUENCY TEXT: DAILY
     Route: 048
     Dates: start: 20230422, end: 20240707
  33. PANTOPRAZOLE SODIUM [Concomitant]
     Active Substance: PANTOPRAZOLE SODIUM
     Dosage: UNK
     Route: 040
     Dates: start: 20240115, end: 20240116
  34. PANTOPRAZOLE SODIUM [Concomitant]
     Active Substance: PANTOPRAZOLE SODIUM
     Dosage: 40 MG, QD
     Dates: start: 20240121, end: 20240707
  35. FERINJECT [Concomitant]
     Active Substance: FERRIC CARBOXYMALTOSE
     Indication: Product used for unknown indication
     Dosage: FREQUENCY TEXT: ONCE
     Route: 040
     Dates: start: 20230525, end: 20230525
  36. POLYETHYLENE GLYCOL 3350\POTASSIUM CHLORIDE\SODIUM BICARBONATE\SODIUM [Concomitant]
     Active Substance: POLYETHYLENE GLYCOL 3350\POTASSIUM CHLORIDE\SODIUM BICARBONATE\SODIUM CHLORIDE
     Indication: Product used for unknown indication
     Dosage: UNK
     Route: 048
     Dates: start: 20240703, end: 20240707
  37. POLYETHYLENE GLYCOL 3350\POTASSIUM CHLORIDE\SODIUM BICARBONATE\SODIUM [Concomitant]
     Active Substance: POLYETHYLENE GLYCOL 3350\POTASSIUM CHLORIDE\SODIUM BICARBONATE\SODIUM CHLORIDE
     Dosage: FREQUENCY TEXT: AS REQUIRED 1 SACHETA DAY
     Route: 048
     Dates: start: 20240703, end: 20240707
  38. ASPIRIN [Concomitant]
     Active Substance: ASPIRIN
     Indication: Product used for unknown indication
     Dosage: FREQUENCY TEXT: DAILY
     Route: 048
     Dates: start: 20230524, end: 20230524
  39. ASPIRIN [Concomitant]
     Active Substance: ASPIRIN
     Dosage: FREQUENCY TEXT: DAILY, 0-1-0-0
  40. PERFALGAN [Concomitant]
     Active Substance: ACETAMINOPHEN
     Indication: Product used for unknown indication
     Dosage: FREQUENCY TEXT: AS REQUIRED
     Route: 040
     Dates: start: 20230525, end: 20230528
  41. AZACITIDINE [Concomitant]
     Active Substance: AZACITIDINE
     Indication: Product used for unknown indication
     Dosage: FREQUENCY TEXT: STANDARD DOSE
     Dates: start: 20230816, end: 20230818
  42. AZACITIDINE [Concomitant]
     Active Substance: AZACITIDINE
     Dosage: FREQUENCY TEXT: STANDARD DOSE
     Dates: start: 20230821, end: 20230822
  43. AZACITIDINE [Concomitant]
     Active Substance: AZACITIDINE
     Dosage: FREQUENCY TEXT: STANDARD DOSE
     Dates: start: 20240408, end: 20240412
  44. AZACITIDINE [Concomitant]
     Active Substance: AZACITIDINE
     Dosage: STANDARD DOSE
     Dates: start: 20230515, end: 20230516
  45. AZACITIDINE [Concomitant]
     Active Substance: AZACITIDINE
     Dosage: STANDARD DOSE
     Dates: start: 20230619, end: 20230623
  46. AZACITIDINE [Concomitant]
     Active Substance: AZACITIDINE
     Dosage: STANDARD DOSE
     Dates: start: 20230508, end: 20230512
  47. AZACITIDINE [Concomitant]
     Active Substance: AZACITIDINE
     Dosage: FREQUENCY TEXT: STANDARD DOSE
     Dates: start: 20231218, end: 20231222
  48. AZACITIDINE [Concomitant]
     Active Substance: AZACITIDINE
     Dosage: FREQUENCY TEXT: STANDARD DOSE
     Dates: start: 20230717, end: 20230721
  49. AZACITIDINE [Concomitant]
     Active Substance: AZACITIDINE
     Dosage: FREQUENCY TEXT: STANDARD DOSE
     Dates: start: 20231106, end: 20231110
  50. AZACITIDINE [Concomitant]
     Active Substance: AZACITIDINE
     Dosage: FREQUENCY TEXT: STANDARD DOSE
     Dates: start: 20231009, end: 20231013
  51. AZACITIDINE [Concomitant]
     Active Substance: AZACITIDINE
     Dosage: FREQUENCY TEXT: STANDARD DOSE
     Dates: start: 20240311, end: 20240315
  52. AZACITIDINE [Concomitant]
     Active Substance: AZACITIDINE
     Dosage: FREQUENCY TEXT: STANDARD DOSE
     Dates: start: 20230911, end: 20230915
  53. AZACITIDINE [Concomitant]
     Active Substance: AZACITIDINE
     Dosage: FREQUENCY TEXT: STANDARD DOSE
     Dates: start: 20240212, end: 20240216
  54. AZACITIDINE [Concomitant]
     Active Substance: AZACITIDINE
     Dosage: FREQUENCY TEXT: STANDARD DOSE
     Dates: start: 20240506, end: 20240510
  55. AZACITIDINE [Concomitant]
     Active Substance: AZACITIDINE
     Dosage: STANDARD DOSE
     Dates: start: 20240603, end: 20240607
  56. MYCOSTATIN [Concomitant]
     Active Substance: NYSTATIN
     Indication: Product used for unknown indication
     Dosage: 1 ML
     Route: 048
     Dates: start: 20230421, end: 20230502
  57. MYCOSTATIN [Concomitant]
     Active Substance: NYSTATIN
     Dosage: 1 ML
     Dates: start: 20240115, end: 20240707
  58. MYCOSTATIN [Concomitant]
     Active Substance: NYSTATIN
     Dosage: 2 ML
     Dates: start: 20230524, end: 20230529
  59. MYCOSTATIN [Concomitant]
     Active Substance: NYSTATIN
     Dosage: 1 ML
     Route: 048
     Dates: end: 20240130
  60. MYCOSTATIN [Concomitant]
     Active Substance: NYSTATIN
     Dosage: 1-0-0
     Route: 048
     Dates: end: 20240131
  61. GRANULOCYTE COLONY-STIMULATING FACTOR NOS [Concomitant]
     Active Substance: GRANULOCYTE COLONY-STIMULATING FACTOR NOS
     Indication: Supportive care
     Dosage: FREQUENCY TEXT: DAILYDOSE 0.8 ML
     Route: 065
     Dates: start: 20230524, end: 20230602
  62. RAMIPRIL [Concomitant]
     Active Substance: RAMIPRIL
     Indication: Product used for unknown indication
     Dosage: FREQUENCY TEXT: DAILY
     Route: 048
     Dates: start: 20231206, end: 20231206
  63. RAMIPRIL [Concomitant]
     Active Substance: RAMIPRIL
     Dosage: UNK, QD
     Route: 048
  64. VANCOMYCIN [Concomitant]
     Active Substance: VANCOMYCIN
     Indication: Infection
     Dosage: UNK
  65. ACETAMINOPHEN [Concomitant]
     Active Substance: ACETAMINOPHEN
     Indication: Product used for unknown indication
     Dosage: AS REQUIRED
     Route: 048
     Dates: start: 20230508, end: 20230611
  66. BENZYDAMINE HYDROCHLORIDE [Concomitant]
     Active Substance: BENZYDAMINE HYDROCHLORIDE
     Indication: Product used for unknown indication
     Dosage: 3 MG, QID
     Route: 048
     Dates: start: 20230421, end: 20230502
  67. ENOXAPARIN SODIUM [Concomitant]
     Active Substance: ENOXAPARIN SODIUM
     Indication: Product used for unknown indication
     Dosage: FREQUENCY TEXT: DAILY
     Route: 058
     Dates: start: 20230601, end: 20230605
  68. ENOXAPARIN SODIUM [Concomitant]
     Active Substance: ENOXAPARIN SODIUM
     Dosage: FREQUENCY TEXT: DAILY
     Route: 058
     Dates: start: 20230420, end: 20230502
  69. ENOXAPARIN SODIUM [Concomitant]
     Active Substance: ENOXAPARIN SODIUM
     Dosage: FREQUENCY TEXT: DAILY
     Dates: start: 20230611, end: 20230615
  70. ONDANSETRON [Concomitant]
     Active Substance: ONDANSETRON
     Indication: Supportive care
     Dosage: FREQUENCY TEXT: OTHER
     Route: 065
     Dates: start: 20230508, end: 20230516
  71. LEVOFLOXACIN [Concomitant]
     Active Substance: LEVOFLOXACIN
     Dosage: UNK
  72. ATORVASTATIN [Concomitant]
     Active Substance: ATORVASTATIN
     Indication: Product used for unknown indication
     Dosage: FREQUENCY TEXT: DAILY
     Route: 048
     Dates: start: 20230615
  73. ATORVASTATIN [Concomitant]
     Active Substance: ATORVASTATIN
     Dosage: FREQUENCY OF APPLICATION: DAILY
     Dates: start: 20240115, end: 20240704
  74. ATORVASTATIN [Concomitant]
     Active Substance: ATORVASTATIN
     Dosage: 40 MG, QD
     Route: 048
     Dates: start: 20240703, end: 20240704
  75. AMPHOTERICIN B [Concomitant]
     Active Substance: AMPHOTERICIN B
     Indication: Product used for unknown indication
     Dosage: UNK UNK, QID
     Route: 048
     Dates: start: 20230524, end: 20230605
  76. GLANDOMED [Concomitant]
     Indication: Product used for unknown indication
     Dosage: UNK
  77. MEROPENEM [Concomitant]
     Active Substance: MEROPENEM
     Indication: Product used for unknown indication
     Dosage: FREQUENCY TEXT: DAILY
     Route: 040
     Dates: start: 20240123, end: 20240429
  78. MEROPENEM [Concomitant]
     Active Substance: MEROPENEM
     Dosage: FREQUENCY TEXT: DAILY
     Route: 042
     Dates: start: 20230611, end: 20230612
  79. DIPHENHYDRAMINE HYDROCHLORIDE [Concomitant]
     Active Substance: DIPHENHYDRAMINE HYDROCHLORIDE
     Indication: Product used for unknown indication
     Dosage: FREQUENCY TEXT: 1 AMPOULE
     Route: 042
     Dates: start: 20240706, end: 20240706
  80. DIPHENHYDRAMINE HYDROCHLORIDE [Concomitant]
     Active Substance: DIPHENHYDRAMINE HYDROCHLORIDE
     Dosage: FREQUENCY TEXT: 1 AMPOULE
     Route: 042
     Dates: start: 20240703, end: 20240703
  81. CYKLOKAPRON [Concomitant]
     Active Substance: TRANEXAMIC ACID
     Indication: Product used for unknown indication
     Dosage: FREQUENCY TEXT: 0-0-1-1-
     Route: 042
     Dates: start: 20240706, end: 20240706
  82. CYKLOKAPRON [Concomitant]
     Active Substance: TRANEXAMIC ACID
     Dosage: FREQUENCY TEXT: 1-1-1
     Route: 042
     Dates: start: 20240707, end: 20240707
  83. FIBRYGA [Concomitant]
     Active Substance: FIBRINOGEN HUMAN
     Indication: Product used for unknown indication
     Dosage: FREQUENCY TEXT: DAILY
     Route: 042
     Dates: start: 20240706, end: 20240706
  84. ALNA [Concomitant]
     Active Substance: TAMSULOSIN HYDROCHLORIDE
     Indication: Product used for unknown indication
     Dosage: FREQUENCY TEXT: 1-0-0 RET
     Route: 048
     Dates: start: 20240704, end: 20240707
  85. ELOMEL [Concomitant]
     Indication: Product used for unknown indication
     Dosage: 1000 ML
     Route: 042
     Dates: start: 20240706, end: 20240706
  86. ELOMEL [Concomitant]
     Dosage: 500 ML, QD
     Route: 042
     Dates: start: 20240703, end: 20240703
  87. ELOMEL [Concomitant]
     Dosage: FREQUENCY OF APPLICATION: 1-0-1
     Dates: start: 20240115, end: 20240117
  88. ERYTHROMYCIN [Concomitant]
     Active Substance: ERYTHROMYCIN
     Indication: Product used for unknown indication
     Dosage: 250 MG
     Route: 042
     Dates: start: 20240706, end: 20240706
  89. ERYTHROMYCIN [Concomitant]
     Active Substance: ERYTHROMYCIN
     Dosage: 250 MG, QD
     Route: 042
     Dates: start: 20240706, end: 20240706
  90. AUGMENTIN [Concomitant]
     Active Substance: AMOXICILLIN\CLAVULANATE POTASSIUM
     Indication: Product used for unknown indication
     Dosage: 1000 MG, BID
     Route: 048
     Dates: start: 20230421, end: 20230507
  91. AUGMENTIN [Concomitant]
     Active Substance: AMOXICILLIN\CLAVULANATE POTASSIUM
     Dosage: UNK
     Route: 048
     Dates: end: 20231210
  92. OCTENISEPT [OCTENIDINE HYDROCHLORIDE;PHENOXYETHANOL] [Concomitant]
     Indication: Product used for unknown indication
     Dosage: UNK, TID
     Route: 048
     Dates: start: 20230524, end: 20230606
  93. NOVALGIN (METAMIZOLE SODIUM) [Concomitant]
     Active Substance: METAMIZOLE SODIUM
     Indication: Pain
     Dosage: FREQUENCY TEXT: AS REQUIRED WHEN PAIN, UPTO 3/DAY
     Route: 040
     Dates: start: 20240704, end: 20240707
  94. MORPHINE HYDROCHLORIDE [Concomitant]
     Active Substance: MORPHINE HYDROCHLORIDE
     Indication: Product used for unknown indication
     Dosage: FREQUENCY TEXT: HALF OF AN AMPOULE 1-1-1
     Route: 058
     Dates: start: 20240706, end: 20240707
  95. NEXIUM I.V. [Concomitant]
     Active Substance: ESOMEPRAZOLE SODIUM
     Indication: Product used for unknown indication
     Dosage: FREQUENCY TEXT: 1-0-0
     Route: 040
     Dates: start: 20240706, end: 20240706
  96. NEXIUM I.V. [Concomitant]
     Active Substance: ESOMEPRAZOLE SODIUM
     Dosage: NEXIUM PERFUSOR UNKNOWN
     Route: 042
     Dates: start: 20240706, end: 20240706
  97. CITRIC ACID MONOHYDRATE\POTASSIUM BICARBONATE\POTASSIUM CITRATE [Concomitant]
     Active Substance: CITRIC ACID MONOHYDRATE\POTASSIUM BICARBONATE\POTASSIUM CITRATE
     Indication: Product used for unknown indication
     Dosage: FREQUENCY TEXT: 1-0-0
     Route: 048
     Dates: start: 20240706, end: 20240707
  98. CITRIC ACID MONOHYDRATE\POTASSIUM BICARBONATE\POTASSIUM CITRATE [Concomitant]
     Active Substance: CITRIC ACID MONOHYDRATE\POTASSIUM BICARBONATE\POTASSIUM CITRATE
     Dosage: FREQUENCY TEXT: 1-0-1
     Route: 048
     Dates: start: 20240704, end: 20240705
  99. CITRIC ACID MONOHYDRATE\POTASSIUM BICARBONATE\POTASSIUM CITRATE [Concomitant]
     Active Substance: CITRIC ACID MONOHYDRATE\POTASSIUM BICARBONATE\POTASSIUM CITRATE
     Dosage: UNK, QD
     Route: 065
     Dates: start: 20240122, end: 20240123
  100. DEXIBUPROFEN [Concomitant]
     Active Substance: DEXIBUPROFEN
     Indication: Pain
     Dosage: FREQUENCY TEXT: DAILY
     Route: 048
     Dates: start: 20240121, end: 20240121
  101. DEXIBUPROFEN [Concomitant]
     Active Substance: DEXIBUPROFEN
     Dosage: 400 MG
     Route: 048
     Dates: end: 20231208
  102. DEXIBUPROFEN [Concomitant]
     Active Substance: DEXIBUPROFEN
     Dosage: 400 MG
     Route: 048
     Dates: end: 20231209
  103. UNASYNA [SULTAMICILLIN TOSILATE] [Concomitant]
     Indication: Product used for unknown indication
     Dosage: UNK, QD
     Route: 040
     Dates: start: 20240119, end: 20240123
  104. CAPHOSOL [CALCIUM CHLORIDE;SODIUM PHOSPHATE DIBASIC;SODIUM PHOSPHATE M [Concomitant]
     Indication: Product used for unknown indication
     Route: 048
  105. ERYCYTOL [HYDROXOCOBALAMIN] [Concomitant]
     Indication: Product used for unknown indication
     Dosage: FREQUENCY TEXT: ONE AMPULE A DAY AD CONTRAINDICATION
     Route: 042
     Dates: start: 20240116, end: 20240116

REACTIONS (17)
  - Urinary tract infection [Recovered/Resolved]
  - Infection [Recovered/Resolved]
  - COVID-19 [Recovered/Resolved]
  - Dizziness [Fatal]
  - Partial seizures [Recovered/Resolved]
  - Anaemia [Fatal]
  - Anaemia folate deficiency [Recovered/Resolved]
  - Hiatus hernia [Recovered/Resolved]
  - Acute myeloid leukaemia recurrent [Fatal]
  - Subdural haematoma [Fatal]
  - Thrombocytopenia [Recovered/Resolved]
  - Fatigue [Fatal]
  - Epilepsy [Recovered/Resolved]
  - C-reactive protein increased [Recovered/Resolved]
  - Gastrointestinal haemorrhage [Fatal]
  - Multiple organ dysfunction syndrome [Fatal]
  - Dyspnoea [Fatal]

NARRATIVE: CASE EVENT DATE: 20230611
